FAERS Safety Report 8208463-0 (Version None)
Quarter: 2012Q1

REPORT INFORMATION
  Report Type: 
  Country: None (occurrence: None)
  Receive Date: 20120314
  Receipt Date: 20120307
  Transmission Date: 20120608
  Serious: Yes (Death, Life-Threatening, Hospitalization, Other)
  Sender: FDA-Public Use
  Company Number: JP-PFIZER INC-2011156692

PATIENT
  Age: 62 Year
  Sex: Male
  Weight: 56.8 kg

DRUGS (10)
  1. SAWACHION [Concomitant]
     Dosage: 5 MG, 2X/DAY
  2. SYMMETREL [Concomitant]
     Dosage: 50 MG, 3X/DAY
  3. POLARAMINE [Concomitant]
     Indication: PROPHYLAXIS
     Dosage: 5 MG, 1X/DAY
     Route: 042
     Dates: start: 20110418
  4. TEMSIROLIMUS [Suspect]
     Indication: RENAL CELL CARCINOMA
     Dosage: 25 MG, WEEKLY, FOR 4 CONSECUTIVE WEEKS
     Dates: start: 20110418, end: 20110607
  5. TEMSIROLIMUS [Suspect]
     Dosage: 25 MG, WEEKLY, FOR 4 CONSECUTIVE WEEKS
     Dates: start: 20110613, end: 20110703
  6. NAPROXEN [Concomitant]
     Dosage: 100 MG, 3X/DAY
  7. NIKORANMART [Concomitant]
     Dosage: 5 MG, 3X/DAY
  8. ENALAPRIL MALEATE [Concomitant]
     Dosage: 2.5 MG, 1X/DAY
     Dates: end: 20110503
  9. ASPIRIN [Concomitant]
     Dosage: 100 MG, 1X/DAY
     Route: 048
  10. CEFAZOLIN SODIUM [Concomitant]
     Dosage: 2 G, 3X/DAY

REACTIONS (8)
  - DISEASE PROGRESSION [None]
  - PNEUMONIA PRIMARY ATYPICAL [None]
  - PNEUMONIA BACTERIAL [None]
  - INTERSTITIAL LUNG DISEASE [None]
  - SEPTIC SHOCK [None]
  - ANAEMIA [None]
  - RENAL CELL CARCINOMA [None]
  - STOMATITIS [None]
